FAERS Safety Report 6602906-1 (Version None)
Quarter: 2010Q1

REPORT INFORMATION
  Report Type: 
  Country: None (occurrence: None)
  Receive Date: 20100219
  Receipt Date: 20100204
  Transmission Date: 20100710
  Serious: Yes (Hospitalization)
  Sender: FDA-Public Use
  Company Number: 2009SP033713

PATIENT
  Age: 22 Year
  Sex: Female
  Weight: 81.6475 kg

DRUGS (9)
  1. NUVARING [Suspect]
     Indication: CONTRACEPTION
     Dates: start: 20041206, end: 20050101
  2. NUVARING [Suspect]
     Indication: CONTRACEPTION
     Dates: start: 20050307, end: 20060401
  3. NUVARING [Suspect]
     Indication: CONTRACEPTION
     Dates: start: 20050430
  4. NUVARING [Suspect]
     Indication: CONTRACEPTION
     Dates: start: 20070813
  5. ORTHO TRI-CYCLEN [Suspect]
     Indication: CONTRACEPTION
     Dates: start: 20060118
  6. LO OVRAL (ETHINYLESTRADIOL AND NORGESTREL) [Suspect]
     Dates: start: 20060411
  7. IBUPROFEN [Concomitant]
  8. LOPRESSOR [Concomitant]
  9. LORTAB [Concomitant]

REACTIONS (26)
  - ANXIETY DISORDER [None]
  - BLOOD PRESSURE SYSTOLIC INCREASED [None]
  - CHEST PAIN [None]
  - DEPRESSION [None]
  - DRUG EXPOSURE DURING PREGNANCY [None]
  - DYSMENORRHOEA [None]
  - HAEMATOCRIT DECREASED [None]
  - HAEMOGLOBIN DECREASED [None]
  - HEADACHE [None]
  - HYDRONEPHROSIS [None]
  - HYPERTENSION [None]
  - INSOMNIA [None]
  - JOINT DISLOCATION [None]
  - LOBAR PNEUMONIA [None]
  - MENORRHAGIA [None]
  - MENSTRUATION IRREGULAR [None]
  - MUSCLE INJURY [None]
  - MUSCLE STRAIN [None]
  - NAUSEA [None]
  - NEPHROLITHIASIS [None]
  - PLEURAL EFFUSION [None]
  - PNEUMONIA [None]
  - PREGNANCY WITH CONTRACEPTIVE DEVICE [None]
  - PULMONARY EMBOLISM [None]
  - ROAD TRAFFIC ACCIDENT [None]
  - VAGINAL DISCHARGE [None]
